FAERS Safety Report 20241689 (Version 1)
Quarter: 2021Q4

REPORT INFORMATION
  Report Type: Spontaneous
  Country: US (occurrence: US)
  Receive Date: 20211228
  Receipt Date: 20211228
  Transmission Date: 20220303
  Serious: Yes (Other)
  Sender: FDA-Public Use
  Company Number: US-PURDUE-USA-2020-0223964

PATIENT
  Sex: Female

DRUGS (7)
  1. OXYCONTIN [Suspect]
     Active Substance: OXYCODONE HYDROCHLORIDE
     Indication: Product used for unknown indication
     Dosage: 5 MG, UNK
     Route: 048
  2. OXYCONTIN [Suspect]
     Active Substance: OXYCODONE HYDROCHLORIDE
     Dosage: 2.5 MG, UNK
     Route: 065
  3. NORCO [Suspect]
     Active Substance: ACETAMINOPHEN\HYDROCODONE BITARTRATE
     Indication: Product used for unknown indication
     Dosage: 5 MG, UNK
     Route: 065
  4. LACIDIPINE [Suspect]
     Active Substance: LACIDIPINE
     Indication: Back pain
     Dosage: UNKNOWN
     Route: 065
  5. LACIDIPINE [Suspect]
     Active Substance: LACIDIPINE
     Indication: Pain in extremity
  6. IBUPROFEN [Suspect]
     Active Substance: IBUPROFEN
     Indication: Back pain
     Dosage: UNKNOWN
     Route: 065
  7. IBUPROFEN [Suspect]
     Active Substance: IBUPROFEN
     Indication: Pain in extremity

REACTIONS (4)
  - Overdose [Unknown]
  - Amnesia [Unknown]
  - Dizziness [Unknown]
  - Vomiting projectile [Unknown]
